FAERS Safety Report 8221525-7 (Version None)
Quarter: 2012Q1

REPORT INFORMATION
  Report Type: 
  Country: None (occurrence: None)
  Receive Date: 20120320
  Receipt Date: 20120312
  Transmission Date: 20120608
  Serious: Yes (Other)
  Sender: FDA-Public Use
  Company Number: DE-FRI-1000028622

PATIENT
  Sex: Male
  Weight: 65 kg

DRUGS (5)
  1. KORODIN [Concomitant]
  2. ASPIRIN TAB [Concomitant]
     Dosage: 100 MG
  3. SIBELIUM [Concomitant]
     Indication: DIZZINESS
  4. MEMANTINE [Suspect]
     Dosage: 10 MG
  5. PROSTAGUTT [Concomitant]
     Dosage: 2 DF

REACTIONS (5)
  - RASH [None]
  - PERSONALITY CHANGE [None]
  - DIZZINESS [None]
  - GAIT DISTURBANCE [None]
  - CIRCULATORY COLLAPSE [None]
